FAERS Safety Report 23793066 (Version 1)
Quarter: 2024Q2

REPORT INFORMATION
  Report Type: Spontaneous
  Country: US (occurrence: US)
  Receive Date: 20240429
  Receipt Date: 20240429
  Transmission Date: 20240716
  Serious: Yes (Hospitalization)
  Sender: FDA-Public Use
  Company Number: US-DRL-USA-LIT/USA/24/0006221

PATIENT
  Age: 57 Year
  Sex: Female

DRUGS (2)
  1. REGADENOSON [Suspect]
     Active Substance: REGADENOSON
     Indication: Cardiac pharmacologic stress test
     Dosage: 0.4MG
  2. REGADENOSON [Suspect]
     Active Substance: REGADENOSON
     Indication: Single photon emission computerised tomogram

REACTIONS (3)
  - Bundle branch block left [Recovered/Resolved]
  - Cardiac perfusion defect [Recovered/Resolved]
  - False positive investigation result [Recovered/Resolved]
